FAERS Safety Report 9425486 (Version 1)
Quarter: 2013Q3

REPORT INFORMATION
  Report Type: Spontaneous
  Country: US (occurrence: US)
  Receive Date: 20130729
  Receipt Date: 20130729
  Transmission Date: 20140515
  Serious: Yes (Other)
  Sender: FDA-Public Use
  Company Number: US-ROCHE-1253001

PATIENT
  Age: 69 Year
  Sex: Female

DRUGS (3)
  1. XOLAIR [Suspect]
     Indication: ASTHMA
     Route: 058
  2. ADVAIR [Concomitant]
  3. SPIRIVA [Concomitant]
     Indication: ASTHMA

REACTIONS (4)
  - Wheezing [Recovering/Resolving]
  - Asthma [Recovering/Resolving]
  - Oropharyngeal pain [Recovering/Resolving]
  - Hypersensitivity [Recovering/Resolving]
